FAERS Safety Report 10090355 (Version 1)
Quarter: 2014Q2

REPORT INFORMATION
  Report Type: Spontaneous
  Country: US (occurrence: US)
  Receive Date: 20140421
  Receipt Date: 20140421
  Transmission Date: 20141212
  Serious: Yes (Other)
  Sender: FDA-Public Use
  Company Number: US-ELI_LILLY_AND_COMPANY-US201404005827

PATIENT
  Sex: 0

DRUGS (3)
  1. TOBRAMYCIN [Suspect]
     Indication: BACTERIAL INFECTION
     Dosage: 2 MG/KG, UNKNOWN
     Route: 042
  2. TOBRAMYCIN [Suspect]
     Dosage: 1 DF, EVERY 8 HRS
     Route: 042
  3. NAFCILLIN [Suspect]
     Indication: BACTERIAL INFECTION
     Dosage: 1.5 G, EVERY 4 HRS
     Route: 042

REACTIONS (1)
  - Nephropathy toxic [Unknown]
